APPROVED DRUG PRODUCT: URSODIOL
Active Ingredient: URSODIOL
Strength: 300MG
Dosage Form/Route: CAPSULE;ORAL
Application: A075592 | Product #001
Applicant: TEVA PHARMACEUTICALS USA
Approved: May 25, 2000 | RLD: No | RS: No | Type: DISCN